FAERS Safety Report 7138136-7 (Version None)
Quarter: 2010Q4

REPORT INFORMATION
  Report Type: 
  Country: None (occurrence: None)
  Receive Date: 20101201
  Receipt Date: 20101201
  Transmission Date: 20110411
  Serious: Yes (Hospitalization)
  Sender: FDA-Public Use
  Company Number: None

PATIENT
  Age: 76 Year
  Sex: Female
  Weight: 90.5 kg

DRUGS (1)
  1. MORPHINE [Suspect]
     Dosage: 30 MG BID PO
     Route: 048
     Dates: start: 20100524, end: 20100616

REACTIONS (1)
  - LETHARGY [None]
